FAERS Safety Report 6816765-5 (Version None)
Quarter: 2010Q3

REPORT INFORMATION
  Report Type: 
  Country: None (occurrence: None)
  Receive Date: 20100706
  Receipt Date: 20100628
  Transmission Date: 20110219
  Serious: Yes (Life-Threatening, Hospitalization)
  Sender: FDA-Public Use
  Company Number: PHHY2010GB18691

PATIENT
  Sex: Male

DRUGS (9)
  1. COMTESS [Suspect]
     Indication: PARKINSONISM
     Dosage: 200 MG X 2 DOSES, UNK
     Dates: start: 20100226, end: 20100227
  2. ANTIPSYCHOTICS [Concomitant]
     Dosage: UNK,UNK
  3. SINEMET [Concomitant]
     Dosage: UNK,UNK
  4. RASAGILINE [Concomitant]
     Dosage: UNK,UNK
     Dates: end: 20100226
  5. CRESTOR [Concomitant]
     Dosage: LONG TERM MEDICATION
     Dates: start: 20100226
  6. NATRILIX - SLOW RELEASE [Concomitant]
     Dosage: LONG TERM MEDICATION
     Dates: start: 20100226
  7. ATENOLOL [Concomitant]
     Dosage: 25 MG, QD
     Dates: start: 20100226
  8. AKINETON [Concomitant]
     Dosage: 2 MG, QD
     Dates: start: 20100226
  9. STELAZINE [Concomitant]
     Indication: PARKINSON'S DISEASE
     Dosage: UNK
     Dates: end: 20100226

REACTIONS (1)
  - BLOOD CREATINE PHOSPHOKINASE INCREASED [None]
